FAERS Safety Report 4774944-5 (Version None)
Quarter: 2005Q3

REPORT INFORMATION
  Report Type: 
  Country: None (occurrence: None)
  Receive Date: 20050920
  Receipt Date: 20050909
  Transmission Date: 20060218
  Serious: Yes (Other)
  Sender: FDA-Public Use
  Company Number: 2005093098

PATIENT
  Age: 44 Year
  Sex: Female
  Weight: 56 kg

DRUGS (3)
  1. ZARONTIN SYRUP [Suspect]
     Indication: EPILEPSY
     Dosage: (2 IN 1 D), ORAL
     Route: 048
  2. PHENOBARBITAL TAB [Concomitant]
  3. CLOBASAM (CLOBAZAM) [Concomitant]

REACTIONS (3)
  - CONDITION AGGRAVATED [None]
  - INCORRECT DOSE ADMINISTERED [None]
  - PETIT MAL EPILEPSY [None]
